FAERS Safety Report 19651201 (Version 1)
Quarter: 2021Q3

REPORT INFORMATION
  Report Type: Other
  Country: US (occurrence: US)
  Receive Date: 20210803
  Receipt Date: 20210803
  Transmission Date: 20211014
  Serious: Yes (Other)
  Sender: FDA-Public Use
  Company Number: US-ROCHE-2879114

PATIENT

DRUGS (2)
  1. RITUXIMAB. [Suspect]
     Active Substance: RITUXIMAB
     Indication: DIFFUSE LARGE B-CELL LYMPHOMA
     Dosage: BETWEEN 3 AND 10 DAYS
     Route: 041
  2. PREDNISONE. [Suspect]
     Active Substance: PREDNISONE
     Indication: DIFFUSE LARGE B-CELL LYMPHOMA
     Dosage: FOR AT LEAST 5 DAYS DURING THE 14 DAYS PRIOR TO THE FIRST CYCLE?THE PREFERRED PREDNISONE DOSE WAS 10
     Route: 048

REACTIONS (10)
  - Toxicity to various agents [Unknown]
  - Infusion related reaction [Unknown]
  - Haemorrhage [Unknown]
  - Mental disorder [Unknown]
  - Thrombosis [Unknown]
  - Electrolyte imbalance [Unknown]
  - Infection [Unknown]
  - Haematotoxicity [Unknown]
  - Gastrointestinal toxicity [Unknown]
  - Cardiotoxicity [Unknown]
